FAERS Safety Report 4667307-4 (Version None)
Quarter: 2005Q2

REPORT INFORMATION
  Report Type: 
  Country: None (occurrence: None)
  Receive Date: 20050519
  Receipt Date: 20050519
  Transmission Date: 20051028
  Serious: No
  Sender: FDA-Public Use
  Company Number: None

PATIENT
  Sex: Female

DRUGS (1)
  1. XANAX [Suspect]
     Indication: MAJOR DEPRESSION
     Dosage: PO Q 3-6 MO
     Route: 048

REACTIONS (3)
  - DRUG INEFFECTIVE [None]
  - THERAPEUTIC RESPONSE UNEXPECTED WITH DRUG SUBSTITUTION [None]
  - VERTIGO [None]
